FAERS Safety Report 13534500 (Version 1)
Quarter: 2017Q2

REPORT INFORMATION
  Report Type: Report from Study
  Country: None (occurrence: US)
  Receive Date: 20170511
  Receipt Date: 20170511
  Transmission Date: 20170830
  Serious: Yes (Other)
  Sender: FDA-Public Use
  Company Number: US-ABBVIE-17K-163-1965179-00

PATIENT
  Sex: Female

DRUGS (2)
  1. HUMIRA [Suspect]
     Active Substance: ADALIMUMAB
     Indication: RHEUMATOID ARTHRITIS
     Route: 058
  2. HUMIRA [Suspect]
     Active Substance: ADALIMUMAB
     Indication: PSORIATIC ARTHROPATHY

REACTIONS (6)
  - Wrist fracture [Unknown]
  - Systemic lupus erythematosus [Unknown]
  - Fall [Not Recovered/Not Resolved]
  - Fibromyalgia [Unknown]
  - Muscular weakness [Not Recovered/Not Resolved]
  - Raynaud^s phenomenon [Unknown]
